FAERS Safety Report 13534872 (Version 4)
Quarter: 2017Q3

REPORT INFORMATION
  Report Type: Spontaneous
  Country: CH (occurrence: CH)
  Receive Date: 20170511
  Receipt Date: 20170707
  Transmission Date: 20171127
  Serious: Yes (Death, Hospitalization)
  Sender: FDA-Public Use
  Company Number: CH-ACTELION-A-CH2017-153457

PATIENT
  Age: 71 Year
  Sex: Female
  Weight: 40 kg

DRUGS (19)
  1. GEMZAR [Suspect]
     Active Substance: GEMCITABINE HYDROCHLORIDE
     Indication: BLADDER TRANSITIONAL CELL CARCINOMA
     Dosage: UNK
     Route: 065
     Dates: start: 20161120, end: 20170310
  2. PANTOPRAZOLE [Concomitant]
     Active Substance: PANTOPRAZOLE
     Dosage: 40 MG, QAM
     Route: 048
     Dates: end: 20170310
  3. LINAGLIPTIN [Concomitant]
     Active Substance: LINAGLIPTIN
     Indication: DIABETES MELLITUS
     Dosage: 5 MG, QAM
     Route: 048
     Dates: end: 20170310
  4. LERCANIDIPINE [Concomitant]
     Active Substance: LERCANIDIPINE
     Indication: SCLERODERMA
  5. DIAVIT [Concomitant]
     Dosage: UNK
     Route: 048
     Dates: start: 20160304, end: 20170310
  6. LERCANIDIPINE [Concomitant]
     Active Substance: LERCANIDIPINE
     Indication: HYPERTENSION
     Dosage: 10 MG, QPM
     Route: 048
     Dates: end: 20170310
  7. TORASEMID [Concomitant]
     Active Substance: TORSEMIDE
     Indication: POLYURIA
     Dosage: 200 MG, QAM
     Route: 048
     Dates: end: 20170310
  8. VITAMIN D [Concomitant]
     Active Substance: CHOLECALCIFEROL
     Dosage: 3 DF, Q1WEEK
     Route: 048
     Dates: start: 20160304, end: 20170310
  9. ASPIRIN. [Concomitant]
     Active Substance: ASPIRIN
     Indication: DIABETES MELLITUS
     Dosage: 100 MG, QAM
     Route: 048
     Dates: end: 20170310
  10. TRACLEER [Suspect]
     Active Substance: BOSENTAN
     Indication: SCLERODERMA ASSOCIATED DIGITAL ULCER
     Dosage: 62.5 MG, BID
     Route: 048
     Dates: start: 20170304, end: 20170309
  11. VITAMIN B12 [Concomitant]
     Active Substance: CYANOCOBALAMIN
     Dosage: UNK
     Route: 042
     Dates: start: 20160304, end: 20170310
  12. AMOXICILLIN CLAVULANIC ACID [Concomitant]
     Active Substance: AMOXICILLIN\CLAVULANIC ACID
     Dosage: UNK
     Dates: end: 20170310
  13. CANDESARTAN. [Concomitant]
     Active Substance: CANDESARTAN
     Indication: HYPERTENSION
     Dosage: 8 MG, QAM
     Route: 048
     Dates: end: 20170310
  14. PADMED CIRCOSAN [Concomitant]
     Active Substance: CALCIUM SULFATE\HERBALS
     Dosage: UNK, BID
     Dates: start: 20170203, end: 20170310
  15. MARCOUMAR [Suspect]
     Active Substance: PHENPROCOUMON
     Indication: THROMBOSIS
     Dosage: 1.5 MG, QD
     Route: 048
     Dates: start: 20170306, end: 20170310
  16. LEVOTHYROXIN [Concomitant]
     Active Substance: LEVOTHYROXINE
     Indication: THYROID HORMONE REPLACEMENT THERAPY
     Dosage: 0.1 MG, QAM
     Route: 048
     Dates: end: 20170310
  17. DARBEPOETIN ALFA [Concomitant]
     Active Substance: DARBEPOETIN ALFA
     Dosage: 80 ?G, Q1WEEK
     Route: 042
     Dates: start: 20160304, end: 20170310
  18. SELENIUM [Concomitant]
     Active Substance: SELENIUM
     Dosage: 100 ?G, Q1WEEK
     Route: 042
     Dates: start: 20160304, end: 20170310
  19. PHENPROCOUMON [Concomitant]
     Active Substance: PHENPROCOUMON
     Dosage: 1.5 MG, OD
     Route: 048
     Dates: start: 20170306, end: 20170310

REACTIONS (1)
  - Gastrointestinal haemorrhage [Fatal]

NARRATIVE: CASE EVENT DATE: 20170310
